FAERS Safety Report 6603743-4 (Version None)
Quarter: 2010Q1

REPORT INFORMATION
  Report Type: 
  Country: None (occurrence: None)
  Receive Date: 20100226
  Receipt Date: 20090114
  Transmission Date: 20100710
  Serious: No
  Sender: FDA-Public Use
  Company Number: A0763606A

PATIENT
  Sex: Female

DRUGS (3)
  1. LAMICTAL CD [Suspect]
     Indication: BIPOLAR DISORDER
     Dosage: 200MG PER DAY
     Route: 048
  2. PAROXETINE HYDROCHLORIDE [Suspect]
     Indication: MAJOR DEPRESSION
  3. SEROQUEL [Concomitant]

REACTIONS (3)
  - AGITATION [None]
  - FATIGUE [None]
  - HYPERVIGILANCE [None]
